FAERS Safety Report 9638761 (Version 1)
Quarter: 2013Q4

REPORT INFORMATION
  Report Type: Spontaneous
  Country: US (occurrence: US)
  Receive Date: 20131022
  Receipt Date: 20131022
  Transmission Date: 20140711
  Serious: No
  Sender: FDA-Public Use
  Company Number: US-BRISTOL-MYERS SQUIBB COMPANY-19205715

PATIENT
  Age: 65 Year
  Sex: Female
  Weight: 79.36 kg

DRUGS (1)
  1. ELIQUIS [Suspect]
     Route: 048
     Dates: start: 2013, end: 20130816

REACTIONS (1)
  - Renal impairment [Unknown]
